FAERS Safety Report 24369689 (Version 1)
Quarter: 2024Q3

REPORT INFORMATION
  Report Type: Report from Study
  Country: US (occurrence: US)
  Receive Date: 20240927
  Receipt Date: 20240927
  Transmission Date: 20241016
  Serious: No
  Sender: ROCHE
  Company Number: US-ROCHE-3474922

PATIENT
  Age: 90 Year
  Sex: Female
  Weight: 68.04 kg

DRUGS (11)
  1. LUCENTIS [Suspect]
     Active Substance: RANIBIZUMAB
     Indication: Neovascular age-related macular degeneration
     Dosage: INJECTION
     Route: 065
  2. LUCENTIS [Suspect]
     Active Substance: RANIBIZUMAB
     Indication: Choroidal neovascularisation
     Dosage: DOSING INTERVAL CHANGED ?ONGOING: NO
     Route: 065
     Dates: start: 202203
  3. LUCENTIS [Suspect]
     Active Substance: RANIBIZUMAB
     Dosage: INJECTION
     Route: 065
  4. LEVOTHYROXINE [Concomitant]
     Active Substance: LEVOTHYROXINE\LEVOTHYROXINE SODIUM
     Dosage: PILL
     Route: 048
  5. ADSOL RED CELL PRESERVATION SYSTEM [Concomitant]
     Dosage: TAKEN TWICE A DAY, ONCE IN THE MORNING AND ONCE IN THE EVENING ;ONGOING: YES
     Route: 048
  6. LOVASTATIN [Concomitant]
     Active Substance: LOVASTATIN
     Dosage: PILL
     Route: 048
  7. LISINOPRIL [Concomitant]
     Active Substance: LISINOPRIL
     Dosage: PILL, PATIENT TAKES HALF OF A 20 MG PILL ;ONGOING: YES
     Route: 048
  8. FUROSEMIDE [Concomitant]
     Active Substance: FUROSEMIDE
     Route: 048
  9. FISH OIL [Concomitant]
     Active Substance: FISH OIL
     Route: 048
  10. VITAMIN D3 [Concomitant]
     Active Substance: CHOLECALCIFEROL
     Route: 048
  11. SUPER B COMPLEX WITH C [Concomitant]
     Dosage: PILL
     Route: 048

REACTIONS (5)
  - COVID-19 [Recovered/Resolved with Sequelae]
  - Heart rate increased [Recovered/Resolved]
  - Hypersomnia [Not Recovered/Not Resolved]
  - Weight decreased [Recovered/Resolved]
  - Off label use [Unknown]

NARRATIVE: CASE EVENT DATE: 20220501
